FAERS Safety Report 7963641 (Version 4)
Quarter: 2013Q1

REPORT INFORMATION
  Report Type: Spontaneous
  Country: US (occurrence: None)
  Receive Date: 20110510
  Receipt Date: 20130104
  Transmission Date: 20140127
  Serious: Yes (Other)
  Sender: FDA-Public Use
  Company Number: AUR-APL-2011-01489

PATIENT
  Age: 73 Year
  Sex: Male

DRUGS (8)
  1. SIMVASTATIN (SIMVASTATIN) [Suspect]
     Indication: PRODUCT USED FOR UNKNOWN INDICATION
     Dosage: 80MG-DAILY
  2. AZITHROMYCIN (AZITHROMYCIN) [Suspect]
     Indication: BRONCHITIS
     Dosage: 500MG-DAILY ; 250MG-DAILY
     Route: 048
  3. BUTMETANIDE (BUMETANIDE) [Concomitant]
  4. LABETALOL (LABETALOL) [Concomitant]
  5. ALLOPURINOL [Concomitant]
  6. PREDNISONE (PREDNISONE) [Concomitant]
  7. GLARGINE INSULIN (INSULIN GLARGINE) [Concomitant]
  8. AMLODIPINE (AMLODIPINE) [Concomitant]

REACTIONS (4)
  - Drug interaction [None]
  - Rhabdomyolysis [None]
  - Bronchitis [None]
  - Renal failure acute [None]
